FAERS Safety Report 10531328 (Version 2)
Quarter: 2014Q4

REPORT INFORMATION
  Report Type: Report from Study
  Country: KR (occurrence: KR)
  Receive Date: 20141021
  Receipt Date: 20141117
  Transmission Date: 20150529
  Serious: No
  Sender: FDA-Public Use
  Company Number: PHHY2014KR136426

PATIENT
  Age: 53 Year
  Sex: Male

DRUGS (13)
  1. MUCOPECT [Concomitant]
     Indication: INFLUENZA LIKE ILLNESS
  2. RESPILENE [Concomitant]
     Indication: UPPER RESPIRATORY TRACT INFECTION
     Dosage: 111.5 MG
     Route: 048
     Dates: start: 20140304, end: 20140422
  3. TYLENOL ER [Concomitant]
     Active Substance: ACETAMINOPHEN
     Indication: INFLUENZA LIKE ILLNESS
     Dosage: 1950 MG
     Route: 048
     Dates: start: 20140204, end: 20140422
  4. LACTICARE ZEMAGIS [Concomitant]
     Indication: PRURITUS
     Dosage: 1 TU
     Route: 061
     Dates: start: 20140408, end: 20140422
  5. ACTIFED [Concomitant]
     Active Substance: PSEUDOEPHEDRINE HYDROCHLORIDE\TRIPROLIDINE HYDROCHLORIDE
     Indication: UPPER RESPIRATORY TRACT INFECTION
     Dosage: 1.5 TAB
     Route: 048
     Dates: start: 20140304, end: 20140422
  6. MUCOPECT [Concomitant]
     Indication: PRODUCTIVE COUGH
     Dosage: 90 MG
     Route: 048
     Dates: start: 20140304, end: 20140422
  7. MEIACT [Concomitant]
     Active Substance: CEFDITOREN PIVOXIL
     Indication: PRODUCTIVE COUGH
     Dosage: 300 MG
     Route: 048
     Dates: start: 20140304, end: 20140422
  8. APLACE [Concomitant]
     Active Substance: TROXIPIDE
     Indication: PROPHYLAXIS
     Dosage: 200 MG
     Route: 048
     Dates: start: 20140204
  9. MEIACT [Concomitant]
     Active Substance: CEFDITOREN PIVOXIL
     Indication: INFLUENZA LIKE ILLNESS
  10. OXYCONTIN [Concomitant]
     Active Substance: OXYCODONE HYDROCHLORIDE
     Indication: MYALGIA
     Dosage: 60 MG
     Route: 048
     Dates: start: 20140204
  11. AMN107 [Suspect]
     Active Substance: NILOTINIB
     Indication: CHRONIC MYELOID LEUKAEMIA
     Dosage: 800 MG, QD
     Route: 048
     Dates: start: 20140204
  12. OXYCONTIN [Concomitant]
     Active Substance: OXYCODONE HYDROCHLORIDE
     Indication: INFLUENZA LIKE ILLNESS
  13. MEGESTROL [Concomitant]
     Active Substance: MEGESTROL
     Indication: INCREASED APPETITE
     Dosage: 1 PK
     Route: 048
     Dates: start: 20140408, end: 20140513

REACTIONS (1)
  - Dyspepsia [Recovered/Resolved]

NARRATIVE: CASE EVENT DATE: 20140204
